FAERS Safety Report 9167433 (Version 1)
Quarter: 2013Q1

REPORT INFORMATION
  Report Type: Spontaneous
  Country: US (occurrence: None)
  Receive Date: 20130301
  Receipt Date: 20130301
  Transmission Date: 20140127
  Serious: Yes (Other)
  Sender: FDA-Public Use
  Company Number: COM-001047

PATIENT
  Age: 72 Year
  Sex: Female
  Weight: 74.84 kg

DRUGS (2)
  1. SIMETHICONE [Suspect]
     Indication: FLATULENCE
     Dosage: 1 SOFTGEL A DAY AS NEEDED ORAL
     Route: 048
     Dates: start: 20130220, end: 20130220
  2. SIMETHICONE [Suspect]
     Indication: TREMOR
     Dosage: 1 SOFTGEL A DAY AS NEEDED ORAL
     Route: 048
     Dates: start: 20130220, end: 20130220

REACTIONS (3)
  - Choking [None]
  - Foreign body [None]
  - Insomnia [None]
